FAERS Safety Report 7465777-X (Version None)
Quarter: 2011Q2

REPORT INFORMATION
  Report Type: 
  Country: None (occurrence: None)
  Receive Date: 20110509
  Receipt Date: 20110429
  Transmission Date: 20111010
  Serious: Yes (Other)
  Sender: FDA-Public Use
  Company Number: US-ASTRAZENECA-2011SE25433

PATIENT
  Sex: Female

DRUGS (2)
  1. PRILOSEC OTC [Suspect]
     Route: 048
  2. OMEPRAZOLE [Suspect]
     Route: 048

REACTIONS (5)
  - DRUG INEFFECTIVE [None]
  - BLADDER OPERATION [None]
  - HAEMORRHAGE [None]
  - PAIN [None]
  - GASTROOESOPHAGEAL REFLUX DISEASE [None]
